FAERS Safety Report 12823891 (Version 1)
Quarter: 2016Q4

REPORT INFORMATION
  Report Type: Report from Study
  Country: IN (occurrence: IN)
  Receive Date: 20161007
  Receipt Date: 20161007
  Transmission Date: 20170207
  Serious: Yes (Death, Hospitalization)
  Sender: FDA-Public Use
  Company Number: IN-EISAI MEDICAL RESEARCH-EC-2016-021033

PATIENT
  Age: 44 Year
  Sex: Female

DRUGS (1)
  1. HALAVEN [Suspect]
     Active Substance: ERIBULIN MESYLATE
     Indication: PRODUCT USED FOR UNKNOWN INDICATION
     Dosage: 2 VIALS PER DOSE
     Route: 041
     Dates: start: 20160823, end: 20160823

REACTIONS (3)
  - Platelet count decreased [Fatal]
  - Generalised oedema [Fatal]
  - Jaundice [Fatal]

NARRATIVE: CASE EVENT DATE: 20160827
